FAERS Safety Report 13134069 (Version 2)
Quarter: 2017Q1

REPORT INFORMATION
  Report Type: Spontaneous
  Country: AR (occurrence: AR)
  Receive Date: 20170120
  Receipt Date: 20170125
  Transmission Date: 20170428
  Serious: Yes (Hospitalization)
  Sender: FDA-Public Use
  Company Number: AR-SA-2017SA007802

PATIENT
  Age: 25 Year
  Sex: Female
  Weight: 47 kg

DRUGS (1)
  1. CEREZYME [Suspect]
     Active Substance: IMIGLUCERASE
     Indication: GAUCHER^S DISEASE
     Dosage: DOSE:59.57 UNIT(S)/KILOGRAM BODYWEIGHT
     Route: 041
     Dates: start: 20161111

REACTIONS (2)
  - Bone pain [Recovering/Resolving]
  - Pyrexia [Unknown]

NARRATIVE: CASE EVENT DATE: 20170113
